FAERS Safety Report 7334032-0 (Version None)
Quarter: 2011Q1

REPORT INFORMATION
  Report Type: 
  Country: None (occurrence: None)
  Receive Date: 20110301
  Receipt Date: 20110301
  Transmission Date: 20110831
  Serious: Yes (Other)
  Sender: FDA-Public Use
  Company Number: None

PATIENT
  Sex: Female

DRUGS (1)
  1. DIAZEPAM [Suspect]
     Indication: ANXIETY
     Dosage: 2 MG 3 TIMES DAILY PO
     Route: 048

REACTIONS (5)
  - HYPERHIDROSIS [None]
  - DIZZINESS [None]
  - ANXIETY [None]
  - PRODUCT SUBSTITUTION ISSUE [None]
  - TREMOR [None]
